FAERS Safety Report 26062674 (Version 1)
Quarter: 2025Q4

REPORT INFORMATION
  Report Type: Spontaneous
  Country: JP (occurrence: JP)
  Receive Date: 20251119
  Receipt Date: 20251119
  Transmission Date: 20260117
  Serious: Yes (Death)
  Sender: Alora Pharma
  Company Number: JP-ACELLA PHARMACEUTICALS, LLC-2025ALO02610

PATIENT
  Age: 74 Year
  Sex: Female
  Weight: 48.9 kg

DRUGS (5)
  1. AMIODARONE HYDROCHLORIDE [Suspect]
     Active Substance: AMIODARONE HYDROCHLORIDE
     Indication: Atrial fibrillation
     Dosage: 200 MG
     Route: 048
  2. ATORVASTATIN [Concomitant]
     Active Substance: ATORVASTATIN
     Dosage: 10 MG
     Route: 065
  3. VONOPRAZAN [Concomitant]
     Active Substance: VONOPRAZAN
     Dosage: 20 MG
     Route: 065
  4. DILTIAZEM [Concomitant]
     Active Substance: DILTIAZEM
     Dosage: 90 MG
     Route: 065
  5. WARFARIN [Concomitant]
     Active Substance: WARFARIN
     Dosage: 1 MG
     Route: 065

REACTIONS (2)
  - Hepatic failure [Fatal]
  - Hepatic encephalopathy [Fatal]
